FAERS Safety Report 25646311 (Version 1)
Quarter: 2025Q3

REPORT INFORMATION
  Report Type: Spontaneous
  Country: EU (occurrence: EU)
  Receive Date: 20250805
  Receipt Date: 20250805
  Transmission Date: 20251020
  Serious: Yes (Life-Threatening, Other)
  Sender: MYLAN
  Company Number: None

PATIENT
  Age: 69 Year
  Sex: Male

DRUGS (36)
  1. METFORMIN [Suspect]
     Active Substance: METFORMIN HYDROCHLORIDE
     Indication: Type 2 diabetes mellitus
     Dosage: 500 MILLIGRAM, QD
  2. METFORMIN [Suspect]
     Active Substance: METFORMIN HYDROCHLORIDE
     Dosage: 500 MILLIGRAM, QD
     Route: 048
  3. METFORMIN [Suspect]
     Active Substance: METFORMIN HYDROCHLORIDE
     Dosage: 500 MILLIGRAM, QD
     Route: 048
  4. METFORMIN [Suspect]
     Active Substance: METFORMIN HYDROCHLORIDE
     Dosage: 500 MILLIGRAM, QD
  5. ESOMEPRAZOLE [Suspect]
     Active Substance: ESOMEPRAZOLE
     Indication: Product used for unknown indication
     Dosage: 20 MILLIGRAM, QD
  6. ESOMEPRAZOLE [Suspect]
     Active Substance: ESOMEPRAZOLE
     Dosage: 20 MILLIGRAM, QD
     Route: 048
  7. ESOMEPRAZOLE [Suspect]
     Active Substance: ESOMEPRAZOLE
     Dosage: 20 MILLIGRAM, QD
     Route: 048
  8. ESOMEPRAZOLE [Suspect]
     Active Substance: ESOMEPRAZOLE
     Dosage: 20 MILLIGRAM, QD
  9. COMIRNATY (TOZINAMERAN) [Suspect]
     Active Substance: TOZINAMERAN
     Indication: COVID-19 immunisation
     Dates: start: 20210817, end: 20210907
  10. COMIRNATY (TOZINAMERAN) [Suspect]
     Active Substance: TOZINAMERAN
     Route: 030
     Dates: start: 20210817, end: 20210907
  11. COMIRNATY (TOZINAMERAN) [Suspect]
     Active Substance: TOZINAMERAN
     Route: 030
     Dates: start: 20210817, end: 20210907
  12. COMIRNATY (TOZINAMERAN) [Suspect]
     Active Substance: TOZINAMERAN
     Dates: start: 20210817, end: 20210907
  13. CHOLECALCIFEROL [Suspect]
     Active Substance: CHOLECALCIFEROL
     Indication: Product used for unknown indication
     Dosage: 1 DOSAGE FORM, MONTHLY
  14. CHOLECALCIFEROL [Suspect]
     Active Substance: CHOLECALCIFEROL
     Dosage: 1 DOSAGE FORM, MONTHLY
     Route: 048
  15. CHOLECALCIFEROL [Suspect]
     Active Substance: CHOLECALCIFEROL
     Dosage: 1 DOSAGE FORM, MONTHLY
     Route: 048
  16. CHOLECALCIFEROL [Suspect]
     Active Substance: CHOLECALCIFEROL
     Dosage: 1 DOSAGE FORM, MONTHLY
  17. DOLIPRANE [Suspect]
     Active Substance: ACETAMINOPHEN
     Indication: Product used for unknown indication
  18. DOLIPRANE [Suspect]
     Active Substance: ACETAMINOPHEN
     Route: 048
  19. DOLIPRANE [Suspect]
     Active Substance: ACETAMINOPHEN
     Route: 048
  20. DOLIPRANE [Suspect]
     Active Substance: ACETAMINOPHEN
  21. KARDEGIC [Suspect]
     Active Substance: ASPIRIN DL-LYSINE
     Indication: Cardiovascular event prophylaxis
     Dosage: 1 DOSAGE FORM, QD, POWDER FOR ORAL SOLUTION IN SINGLE-DOSE SACHET
  22. KARDEGIC [Suspect]
     Active Substance: ASPIRIN DL-LYSINE
     Dosage: 1 DOSAGE FORM, QD, POWDER FOR ORAL SOLUTION IN SINGLE-DOSE SACHET
     Route: 048
  23. KARDEGIC [Suspect]
     Active Substance: ASPIRIN DL-LYSINE
     Dosage: 1 DOSAGE FORM, QD, POWDER FOR ORAL SOLUTION IN SINGLE-DOSE SACHET
     Route: 048
  24. KARDEGIC [Suspect]
     Active Substance: ASPIRIN DL-LYSINE
     Dosage: 1 DOSAGE FORM, QD, POWDER FOR ORAL SOLUTION IN SINGLE-DOSE SACHET
  25. EXFORGE [Suspect]
     Active Substance: AMLODIPINE BESYLATE\VALSARTAN
     Indication: Hypertension
     Dosage: 1 DOSAGE FORM, QD
  26. EXFORGE [Suspect]
     Active Substance: AMLODIPINE BESYLATE\VALSARTAN
     Dosage: 1 DOSAGE FORM, QD
     Route: 048
  27. EXFORGE [Suspect]
     Active Substance: AMLODIPINE BESYLATE\VALSARTAN
     Dosage: 1 DOSAGE FORM, QD
     Route: 048
  28. EXFORGE [Suspect]
     Active Substance: AMLODIPINE BESYLATE\VALSARTAN
     Dosage: 1 DOSAGE FORM, QD
  29. JANUVIA [Suspect]
     Active Substance: SITAGLIPTIN PHOSPHATE
     Indication: Type 2 diabetes mellitus
     Dosage: 1 DOSAGE FORM, QD
  30. JANUVIA [Suspect]
     Active Substance: SITAGLIPTIN PHOSPHATE
     Dosage: 1 DOSAGE FORM, QD
     Route: 048
  31. JANUVIA [Suspect]
     Active Substance: SITAGLIPTIN PHOSPHATE
     Dosage: 1 DOSAGE FORM, QD
     Route: 048
  32. JANUVIA [Suspect]
     Active Substance: SITAGLIPTIN PHOSPHATE
     Dosage: 1 DOSAGE FORM, QD
  33. EZETIMIBE\SIMVASTATIN [Suspect]
     Active Substance: EZETIMIBE\SIMVASTATIN
     Indication: Hyperlipidaemia
     Dosage: 1 DOSAGE FORM, QD
  34. EZETIMIBE\SIMVASTATIN [Suspect]
     Active Substance: EZETIMIBE\SIMVASTATIN
     Dosage: 1 DOSAGE FORM, QD
     Route: 048
  35. EZETIMIBE\SIMVASTATIN [Suspect]
     Active Substance: EZETIMIBE\SIMVASTATIN
     Dosage: 1 DOSAGE FORM, QD
     Route: 048
  36. EZETIMIBE\SIMVASTATIN [Suspect]
     Active Substance: EZETIMIBE\SIMVASTATIN
     Dosage: 1 DOSAGE FORM, QD

REACTIONS (3)
  - Papillary renal cell carcinoma [Recovered/Resolved]
  - Lipoma [Not Recovered/Not Resolved]
  - Diabetes mellitus inadequate control [Not Recovered/Not Resolved]

NARRATIVE: CASE EVENT DATE: 20230513
